FAERS Safety Report 4700134-8 (Version None)
Quarter: 2005Q2

REPORT INFORMATION
  Report Type: 
  Country: None (occurrence: None)
  Receive Date: 20050624
  Receipt Date: 20050624
  Transmission Date: 20051028
  Serious: Yes (Death)
  Sender: FDA-Public Use
  Company Number: None

PATIENT
  Age: 68 Year
  Sex: Female
  Weight: 68.0396 kg

DRUGS (1)
  1. ALKA SELTZER COLD AND SINUS     EQUATE [Suspect]
     Indication: SINUS CONGESTION
     Dosage: 2 TABLETS WI      ORAL
     Route: 048
     Dates: start: 20050310, end: 20050317

REACTIONS (7)
  - BRAIN DEATH [None]
  - CEREBRAL HAEMORRHAGE [None]
  - CEREBROVASCULAR ACCIDENT [None]
  - FALL [None]
  - HEMIPLEGIA [None]
  - LOSS OF CONSCIOUSNESS [None]
  - SPEECH DISORDER [None]
